FAERS Safety Report 13035608 (Version 1)
Quarter: 2016Q4

REPORT INFORMATION
  Report Type: Spontaneous
  Country: US (occurrence: US)
  Receive Date: 20161216
  Receipt Date: 20161216
  Transmission Date: 20170207
  Serious: Yes (Hospitalization)
  Sender: FDA-Public Use
  Company Number: None

PATIENT
  Age: 36 Year
  Sex: Male
  Weight: 46.9 kg

DRUGS (1)
  1. ERBITUX [Suspect]
     Active Substance: CETUXIMAB
     Dates: end: 20140314

REACTIONS (5)
  - Hypophagia [None]
  - Blood calcium abnormal [None]
  - Gastrostomy [None]
  - Metastases to lung [None]
  - Weight decreased [None]

NARRATIVE: CASE EVENT DATE: 20140410
